FAERS Safety Report 9291685 (Version 1)
Quarter: 2013Q2

REPORT INFORMATION
  Report Type: Spontaneous
  Country: GB (occurrence: GB)
  Receive Date: 20130515
  Receipt Date: 20130515
  Transmission Date: 20140414
  Serious: Yes (Other)
  Sender: FDA-Public Use
  Company Number: GB-GLAXOSMITHKLINE-B0872259A

PATIENT
  Age: 49 Year
  Sex: Female

DRUGS (1)
  1. NIQUITIN [Suspect]
     Indication: EX-TOBACCO USER
     Route: 065

REACTIONS (12)
  - Bipolar disorder [Unknown]
  - Obsessive thoughts [Recovered/Resolved]
  - Anxiety [Unknown]
  - Ill-defined disorder [Unknown]
  - Irritability [Unknown]
  - Dizziness [Unknown]
  - Dissociation [Unknown]
  - Weight increased [Unknown]
  - Tobacco user [Unknown]
  - Increased appetite [Unknown]
  - Migraine [Unknown]
  - Joint injury [Unknown]
